FAERS Safety Report 5075815-X (Version None)
Quarter: 2006Q3

REPORT INFORMATION
  Report Type: 
  Country: None (occurrence: None)
  Receive Date: 20060809
  Receipt Date: 20060802
  Transmission Date: 20061208
  Serious: Yes (Life-Threatening, Hospitalization)
  Sender: FDA-Public Use
  Company Number: ES-GLAXOSMITHKLINE-B0433251A

PATIENT
  Age: 68 Year
  Sex: Female

DRUGS (1)
  1. AUGMENTIN [Suspect]
     Indication: DRUG USE FOR UNKNOWN INDICATION
     Route: 048
     Dates: start: 20060312, end: 20060315

REACTIONS (5)
  - ALANINE AMINOTRANSFERASE INCREASED [None]
  - ASPARTATE AMINOTRANSFERASE INCREASED [None]
  - CHOLELITHIASIS [None]
  - CLOSTRIDIUM DIFFICILE COLITIS [None]
  - GAMMA-GLUTAMYLTRANSFERASE INCREASED [None]
